FAERS Safety Report 5699187-2 (Version None)
Quarter: 2008Q2

REPORT INFORMATION
  Report Type: 
  Country: None (occurrence: None)
  Receive Date: 20080407
  Receipt Date: 20080407
  Transmission Date: 20081010
  Serious: Yes (Death)
  Sender: FDA-Public Use
  Company Number: None

PATIENT
  Sex: Male
  Weight: 185.0676 kg

DRUGS (8)
  1. CLOZAPINE [Suspect]
     Indication: SCHIZOAFFECTIVE DISORDER
     Dosage: 125 MG QHS PO
     Route: 048
     Dates: start: 20070406, end: 20070423
  2. COGENTIN [Concomitant]
  3. LITHIUM CARBONATE [Concomitant]
  4. PROLIXIN [Concomitant]
  5. ZYPREXA [Concomitant]
  6. TYLENOL (CAPLET) [Concomitant]
  7. NICORETTE [Concomitant]
  8. NICOTINE [Concomitant]

REACTIONS (1)
  - MYOCARDITIS [None]
